FAERS Safety Report 10369067 (Version 2)
Quarter: 2014Q3

REPORT INFORMATION
  Report Type: Spontaneous
  Country: DE (occurrence: DE)
  Receive Date: 20140807
  Receipt Date: 20140807
  Transmission Date: 20150326
  Serious: Yes (Hospitalization, Other)
  Sender: FDA-Public Use
  Company Number: DE-PFIZER INC-2014183986

PATIENT
  Age: 29 Year
  Sex: Female
  Weight: 44 kg

DRUGS (1)
  1. LYRICA [Suspect]
     Active Substance: PREGABALIN
     Dosage: UNK

REACTIONS (5)
  - Tremor [Unknown]
  - Intentional product misuse [Unknown]
  - Convulsion [Unknown]
  - Drug screen positive [Unknown]
  - Fall [Unknown]

NARRATIVE: CASE EVENT DATE: 20140628
